FAERS Safety Report 21133358 (Version 1)
Quarter: 2022Q3

REPORT INFORMATION
  Report Type: Report from Study
  Country: ES (occurrence: None)
  Receive Date: 20220726
  Receipt Date: 20220726
  Transmission Date: 20221026
  Serious: Yes (Hospitalization, Disabling)
  Sender: FDA-Public Use
  Company Number: ES-ROCHE-2792385

PATIENT
  Age: 41 Year
  Sex: Female

DRUGS (16)
  1. PRALSETINIB [Suspect]
     Active Substance: PRALSETINIB
     Indication: Medullary thyroid cancer
     Route: 048
     Dates: start: 20180220, end: 20180308
  2. PRALSETINIB [Suspect]
     Active Substance: PRALSETINIB
     Route: 048
     Dates: start: 20180405
  3. CALCIUM CARBONATE [Concomitant]
     Active Substance: CALCIUM CARBONATE
     Route: 048
  4. LEVOTHYROXINE SODIUM [Concomitant]
     Active Substance: LEVOTHYROXINE SODIUM
     Indication: Prophylaxis
     Route: 048
  5. LORAZEPAM [Concomitant]
     Active Substance: LORAZEPAM
     Route: 048
  6. OXYCONTIN [Concomitant]
     Active Substance: OXYCODONE HYDROCHLORIDE
     Indication: Bone pain
     Route: 048
     Dates: start: 201801
  7. OXYCODONE HYDROCHLORIDE [Concomitant]
     Active Substance: OXYCODONE HYDROCHLORIDE
     Indication: Bone pain
     Route: 048
     Dates: start: 201801
  8. ROCALTROL [Concomitant]
     Active Substance: CALCITRIOL
     Indication: Prophylaxis
     Route: 048
  9. PANTOPRAZOLE [Concomitant]
     Active Substance: PANTOPRAZOLE
     Indication: Prophylaxis
     Route: 042
     Dates: start: 20180306, end: 20180309
  10. ENOXAPARIN [Concomitant]
     Active Substance: ENOXAPARIN
     Route: 058
     Dates: start: 20180306, end: 20180309
  11. MORPHINE [Concomitant]
     Active Substance: MORPHINE
     Route: 042
     Dates: start: 20180306, end: 20180307
  12. ACETAMINOPHEN [Concomitant]
     Active Substance: ACETAMINOPHEN
     Indication: Prophylaxis
     Route: 042
     Dates: start: 20180306, end: 20180309
  13. DEXKETOPROFEN [Concomitant]
     Active Substance: DEXKETOPROFEN
     Indication: Prophylaxis
     Route: 042
     Dates: start: 20180306, end: 20180309
  14. GABAPENTIN [Concomitant]
     Active Substance: GABAPENTIN
     Indication: Prophylaxis
     Route: 048
     Dates: start: 20180307, end: 20180309
  15. QUETIAPINE [Concomitant]
     Active Substance: QUETIAPINE
     Indication: Withdrawal syndrome
     Route: 048
     Dates: start: 20180307, end: 20180309
  16. QUETIAPINE [Concomitant]
     Active Substance: QUETIAPINE
     Route: 048
     Dates: start: 20180307, end: 20180309

REACTIONS (1)
  - Myositis [Recovered/Resolved with Sequelae]

NARRATIVE: CASE EVENT DATE: 20180316
